FAERS Safety Report 19846220 (Version 5)
Quarter: 2021Q4

REPORT INFORMATION
  Report Type: Spontaneous
  Country: US (occurrence: US)
  Receive Date: 20210916
  Receipt Date: 20211014
  Transmission Date: 20220303
  Serious: Yes (Other)
  Sender: FDA-Public Use
  Company Number: US-AMGEN-USASP2021141618

PATIENT
  Age: 63 Year
  Sex: Female

DRUGS (1)
  1. MVASI [Suspect]
     Active Substance: BEVACIZUMAB-AWWB
     Indication: Colorectal cancer
     Dosage: 300 MILLIGRAM
     Route: 065
     Dates: end: 20210817

REACTIONS (2)
  - Colorectal cancer [Unknown]
  - Adverse event [Unknown]

NARRATIVE: CASE EVENT DATE: 20210909
